FAERS Safety Report 18181634 (Version 2)
Quarter: 2020Q3

REPORT INFORMATION
  Report Type: Report from Study
  Country: BR (occurrence: BR)
  Receive Date: 20200821
  Receipt Date: 20200827
  Transmission Date: 20201103
  Serious: Yes (Death, Hospitalization, Other)
  Sender: FDA-Public Use
  Company Number: NVSC2020BR230820

PATIENT
  Age: 97 Year
  Sex: Female
  Weight: 55 kg

DRUGS (5)
  1. EXELON [Suspect]
     Active Substance: RIVASTIGMINE TARTRATE
     Dosage: 1 DF (10 *OT), QD
     Route: 062
  2. OXYGEN. [Concomitant]
     Active Substance: OXYGEN
     Indication: PRODUCT USED FOR UNKNOWN INDICATION
     Dosage: UNK
     Route: 065
  3. EXELON [Suspect]
     Active Substance: RIVASTIGMINE TARTRATE
     Dosage: 1 DF (15 *OT), QD STOPPED 2 AND HALF YEARS AGO
     Route: 062
  4. EXELON [Suspect]
     Active Substance: RIVASTIGMINE TARTRATE
     Indication: DEMENTIA ALZHEIMER^S TYPE
     Dosage: 1 DF (5 *OT), QD STARTED AROUND 8 YEARS AGO
     Route: 062
  5. MEMANTINE. [Concomitant]
     Active Substance: MEMANTINE
     Indication: DEMENTIA ALZHEIMER^S TYPE
     Dosage: 10 MG, BID STARTED 2 AND HALF YEARS AGO
     Route: 061

REACTIONS (6)
  - Respiratory failure [Fatal]
  - COVID-19 [Fatal]
  - Functional gastrointestinal disorder [Not Recovered/Not Resolved]
  - Cardiac arrest [Fatal]
  - Immunodeficiency [Not Recovered/Not Resolved]
  - Dysentery [Not Recovered/Not Resolved]

NARRATIVE: CASE EVENT DATE: 201909
